FAERS Safety Report 24160488 (Version 1)
Quarter: 2024Q3

REPORT INFORMATION
  Report Type: Spontaneous
  Country: FR (occurrence: FR)
  Receive Date: 20240801
  Receipt Date: 20240801
  Transmission Date: 20241016
  Serious: Yes (Hospitalization, Other)
  Sender: BRISTOL MYERS SQUIBB
  Company Number: None

PATIENT
  Age: 66 Year
  Sex: Male
  Weight: 88 kg

DRUGS (5)
  1. REVLIMID [Suspect]
     Active Substance: LENALIDOMIDE
     Indication: Plasma cell myeloma
     Dosage: FROM D1 TO D21 - 28-DAY CYCLE
     Route: 048
     Dates: start: 20180813, end: 20180902
  2. REVLIMID [Suspect]
     Active Substance: LENALIDOMIDE
     Dosage: FROM D1 TO D21 - 28-DAY CYCLE
     Route: 048
     Dates: start: 20180910, end: 20180915
  3. VELCADE [Suspect]
     Active Substance: BORTEZOMIB
     Indication: Plasma cell myeloma
     Dosage: 1.3 MG/M? ON D1, D5, D9 AND D12 - 21 DAY CYCLE
     Route: 058
     Dates: start: 201803, end: 20180626
  4. NINLARO [Suspect]
     Active Substance: IXAZOMIB CITRATE
     Indication: Plasma cell myeloma
     Dosage: ON D1, D8 AND D15 - 28-DAY CYCLE
     Route: 048
     Dates: start: 20180813, end: 20180827
  5. NINLARO [Suspect]
     Active Substance: IXAZOMIB CITRATE
     Dosage: ON D1, D8 AND D15 - 28-DAY CYCLE
     Route: 048
     Dates: start: 20180910, end: 20180910

REACTIONS (2)
  - Colitis ischaemic [Recovered/Resolved with Sequelae]
  - Dilated cardiomyopathy [Recovered/Resolved]

NARRATIVE: CASE EVENT DATE: 20180917
